FAERS Safety Report 8917170 (Version 1)
Quarter: 2012Q4

REPORT INFORMATION
  Report Type: 
  Country: JP (occurrence: JP)
  Receive Date: 20121120
  Receipt Date: 20121120
  Transmission Date: 20130627
  Serious: Yes (Death)
  Sender: FDA-Public Use
  Company Number: PHHY2012JP104988

PATIENT

DRUGS (1)
  1. EXJADE [Suspect]

REACTIONS (1)
  - Death [Fatal]
